FAERS Safety Report 22256548 (Version 1)
Quarter: 2023Q2

REPORT INFORMATION
  Report Type: Spontaneous
  Country: CA (occurrence: CA)
  Receive Date: 20230426
  Receipt Date: 20230426
  Transmission Date: 20230722
  Serious: Yes (Hospitalization, Other)
  Sender: FDA-Public Use
  Company Number: CA-BAUSCH-BL-2023-006218

PATIENT
  Age: 78 Year
  Sex: Female
  Weight: 93 kg

DRUGS (36)
  1. BUDESONIDE [Suspect]
     Active Substance: BUDESONIDE
     Indication: Product used for unknown indication
     Route: 065
  2. JUBLIA [Suspect]
     Active Substance: EFINACONAZOLE
     Indication: Product used for unknown indication
     Dosage: SOLUTION TOPICAL
     Route: 061
  3. ALBUTEROL [Suspect]
     Active Substance: ALBUTEROL
     Indication: Product used for unknown indication
     Route: 065
  4. NITROGLYCERIN [Suspect]
     Active Substance: NITROGLYCERIN
     Indication: Product used for unknown indication
     Route: 065
  5. ACETAMINOPHEN [Suspect]
     Active Substance: ACETAMINOPHEN
     Indication: Product used for unknown indication
     Route: 065
  6. ATROVENT [Suspect]
     Active Substance: IPRATROPIUM BROMIDE
     Indication: Product used for unknown indication
     Route: 065
  7. AZITHROMYCIN [Suspect]
     Active Substance: AZITHROMYCIN
     Indication: Product used for unknown indication
     Route: 065
  8. BUDESONIDE\FORMOTEROL FUMARATE [Suspect]
     Active Substance: BUDESONIDE\FORMOTEROL FUMARATE
     Indication: Product used for unknown indication
     Route: 055
  9. CANDESARTAN CILEXETIL [Suspect]
     Active Substance: CANDESARTAN CILEXETIL
     Indication: Product used for unknown indication
     Route: 048
  10. DEXILANT [Suspect]
     Active Substance: DEXLANSOPRAZOLE
     Indication: Product used for unknown indication
     Dosage: CAPSULE, DELAYED RELEASE
     Route: 065
  11. DOMPERIDONE MALEATE [Suspect]
     Active Substance: DOMPERIDONE MALEATE
     Indication: Product used for unknown indication
     Route: 065
  12. LANSOPRAZOLE [Suspect]
     Active Substance: LANSOPRAZOLE
     Indication: Product used for unknown indication
     Dosage: CAPSULE, DELAYED RELEASE
     Route: 065
  13. LEVOTHYROXINE SODIUM [Suspect]
     Active Substance: LEVOTHYROXINE SODIUM
     Indication: Product used for unknown indication
     Route: 065
  14. MONTELUKAST SODIUM [Suspect]
     Active Substance: MONTELUKAST SODIUM
     Indication: Product used for unknown indication
     Route: 048
  15. MORPHINE SULFATE [Suspect]
     Active Substance: MORPHINE SULFATE
     Indication: Product used for unknown indication
     Route: 048
  16. MORPHINE SULFATE [Suspect]
     Active Substance: MORPHINE SULFATE
     Route: 065
  17. NASONEX [Suspect]
     Active Substance: MOMETASONE FUROATE
     Indication: Product used for unknown indication
     Dosage: SPRAY, METERED DOSE
     Route: 065
  18. NUCALA [Suspect]
     Active Substance: MEPOLIZUMAB
     Indication: Asthma
     Route: 042
  19. OMALIZUMAB [Suspect]
     Active Substance: OMALIZUMAB
     Indication: Product used for unknown indication
     Route: 065
  20. PANTOPRAZOLE SODIUM [Suspect]
     Active Substance: PANTOPRAZOLE SODIUM
     Indication: Product used for unknown indication
     Route: 065
  21. PRAMIPEXOLE DIHYDROCHLORIDE [Suspect]
     Active Substance: PRAMIPEXOLE DIHYDROCHLORIDE
     Indication: Product used for unknown indication
     Route: 048
  22. PREGABALIN [Suspect]
     Active Substance: PREGABALIN
     Indication: Product used for unknown indication
     Route: 048
  23. PREVNAR 13 [Suspect]
     Active Substance: PNEUMOCOCCAL 13-VALENT CONJUGATE VACCINE
     Indication: Immunisation
     Route: 030
  24. QUETIAPINE FUMARATE [Suspect]
     Active Substance: QUETIAPINE FUMARATE
     Indication: Product used for unknown indication
     Route: 065
  25. RANITIDINE HYDROCHLORIDE [Suspect]
     Active Substance: RANITIDINE HYDROCHLORIDE
     Indication: Product used for unknown indication
     Route: 065
  26. RISEDRONATE SODIUM [Suspect]
     Active Substance: RISEDRONATE SODIUM
     Indication: Product used for unknown indication
     Route: 065
  27. ROSUVASTATIN CALCIUM [Suspect]
     Active Substance: ROSUVASTATIN CALCIUM
     Indication: Product used for unknown indication
     Route: 065
  28. SENNOSIDES [Suspect]
     Active Substance: SENNOSIDES
     Indication: Product used for unknown indication
     Route: 065
  29. SENOKOT [Suspect]
     Active Substance: SENNOSIDES
     Indication: Product used for unknown indication
     Route: 065
  30. SINGULAIR [Suspect]
     Active Substance: MONTELUKAST SODIUM
     Indication: Product used for unknown indication
     Route: 065
  31. SYNTHROID [Suspect]
     Active Substance: LEVOTHYROXINE SODIUM
     Indication: Product used for unknown indication
     Route: 065
  32. TIOTROPIUM BROMIDE MONOHYDRATE [Suspect]
     Active Substance: TIOTROPIUM BROMIDE MONOHYDRATE
     Indication: Product used for unknown indication
     Route: 065
  33. TRAZODONE HYDROCHLORIDE [Suspect]
     Active Substance: TRAZODONE HYDROCHLORIDE
     Indication: Product used for unknown indication
     Route: 065
  34. TRAZODONE HYDROCHLORIDE [Suspect]
     Active Substance: TRAZODONE HYDROCHLORIDE
     Route: 065
  35. CHOLECALCIFEROL [Suspect]
     Active Substance: CHOLECALCIFEROL
     Indication: Product used for unknown indication
     Dosage: VITAMIN D (CHOLECALCIFEROL) (JAMIESON)
     Route: 048
  36. ZOPICLONE [Suspect]
     Active Substance: ZOPICLONE
     Indication: Product used for unknown indication
     Route: 065

REACTIONS (38)
  - Anaemia [Unknown]
  - Aspiration [Unknown]
  - Asthenia [Unknown]
  - Asthma [Unknown]
  - Blood calcium increased [Unknown]
  - Blood creatinine increased [Unknown]
  - Blood test abnormal [Unknown]
  - Bronchiectasis [Unknown]
  - Bronchopulmonary aspergillosis allergic [Unknown]
  - Cough [Unknown]
  - Dyspnoea [Unknown]
  - Gastrooesophageal reflux disease [Unknown]
  - Haemoptysis [Unknown]
  - Hypoxia [Unknown]
  - Liver function test increased [Unknown]
  - Lower respiratory tract infection [Unknown]
  - Lung opacity [Unknown]
  - Musculoskeletal stiffness [Unknown]
  - Obstructive airways disorder [Unknown]
  - Pain [Unknown]
  - Pleural effusion [Unknown]
  - Pneumonia [Unknown]
  - Pulmonary fibrosis [Unknown]
  - Pyrexia [Unknown]
  - Rales [Unknown]
  - Sputum discoloured [Unknown]
  - Total lung capacity decreased [Unknown]
  - Transaminases increased [Unknown]
  - Upper respiratory tract infection [Unknown]
  - Wheezing [Unknown]
  - Constipation [Unknown]
  - Tremor [Unknown]
  - Abdominal pain upper [Unknown]
  - Drug hypersensitivity [Unknown]
  - Fatigue [Unknown]
  - Headache [Unknown]
  - Oedema peripheral [Unknown]
  - Drug ineffective [Unknown]
